FAERS Safety Report 5074158-8 (Version None)
Quarter: 2006Q3

REPORT INFORMATION
  Report Type: 
  Country: None (occurrence: None)
  Receive Date: 20060803
  Receipt Date: 20060721
  Transmission Date: 20061208
  Serious: Yes (Hospitalization)
  Sender: FDA-Public Use
  Company Number: 2006US001567

PATIENT
  Sex: Male

DRUGS (2)
  1. AMEVIVE [Suspect]
     Indication: PSORIASIS
     Dates: start: 20051118
  2. AMEVIVE [Suspect]
     Indication: PSORIASIS
     Dates: start: 20060410

REACTIONS (4)
  - DIARRHOEA [None]
  - DYSAESTHESIA [None]
  - HEADACHE [None]
  - NAUSEA [None]
